FAERS Safety Report 6230074-7 (Version None)
Quarter: 2009Q2

REPORT INFORMATION
  Report Type: 
  Country: None (occurrence: None)
  Receive Date: 20090615
  Receipt Date: 20090528
  Transmission Date: 20091009
  Serious: Yes (Hospitalization, Other)
  Sender: FDA-Public Use
  Company Number: JP-GENENTECH-284468

PATIENT
  Age: 74 Year
  Sex: Male

DRUGS (4)
  1. AVASTIN [Suspect]
     Indication: LARGE INTESTINE CARCINOMA
     Dosage: 5 MG/KG, Q2W
     Route: 041
     Dates: start: 20080520, end: 20090525
  2. FLUOROURACIL [Suspect]
     Indication: LARGE INTESTINE CARCINOMA
     Route: 042
  3. CALCIUM LEVOFOLINATE [Suspect]
     Indication: LARGE INTESTINE CARCINOMA
     Route: 041
  4. IRINOTECAN HCL [Suspect]
     Indication: LARGE INTESTINE CARCINOMA
     Route: 041

REACTIONS (2)
  - INTERSTITIAL LUNG DISEASE [None]
  - PULMONARY ALVEOLAR HAEMORRHAGE [None]
